FAERS Safety Report 6516490-4 (Version None)
Quarter: 2009Q4

REPORT INFORMATION
  Report Type: 
  Country: None (occurrence: None)
  Receive Date: 20091223
  Receipt Date: 20091221
  Transmission Date: 20100525
  Serious: Yes (Other)
  Sender: FDA-Public Use
  Company Number: US-TYCO HEALTHCARE/MALLINCKRODT-T200902328

PATIENT

DRUGS (8)
  1. OPTIMARK [Suspect]
     Dosage: UNK
     Dates: start: 20051215, end: 20051215
  2. OMNISCAN [Suspect]
     Dosage: UNK
     Dates: start: 20050222, end: 20050222
  3. OMNISCAN [Suspect]
     Dosage: UNK
     Dates: start: 20050224, end: 20050224
  4. OMNISCAN [Suspect]
     Dosage: UNK
     Dates: start: 20050303, end: 20050303
  5. OMNISCAN [Suspect]
     Dosage: UNK
     Dates: start: 20050405, end: 20050405
  6. MAGNEVIST [Suspect]
     Dosage: UNK
  7. PROHANCE [Suspect]
     Dosage: UNK
  8. MULTIHANCE [Suspect]
     Dosage: UNK

REACTIONS (1)
  - NEPHROGENIC SYSTEMIC FIBROSIS [None]
